FAERS Safety Report 18415280 (Version 1)
Quarter: 2020Q4

REPORT INFORMATION
  Report Type: Spontaneous
  Country: US (occurrence: US)
  Receive Date: 20201022
  Receipt Date: 20201022
  Transmission Date: 20210114
  Serious: Yes (Other)
  Sender: FDA-Public Use
  Company Number: US-INTRA-CELLULAR THERAPIES, INC.-2020ICT00175

PATIENT
  Age: 25 Year
  Sex: Female

DRUGS (3)
  1. CAPLYTA [Suspect]
     Active Substance: LUMATEPERONE
     Indication: PARANOIA
  2. CAPLYTA [Suspect]
     Active Substance: LUMATEPERONE
     Indication: HALLUCINATION
  3. CAPLYTA [Suspect]
     Active Substance: LUMATEPERONE
     Indication: SCHIZOAFFECTIVE DISORDER
     Dosage: 42 MG, 1X/DAY IN THE EVENING
     Dates: start: 20201003, end: 20201003

REACTIONS (5)
  - Burning sensation [Recovered/Resolved]
  - Panic reaction [Recovered/Resolved]
  - Feeling hot [Recovered/Resolved]
  - Anaphylactic reaction [Recovered/Resolved]
  - Off label use [Recovered/Resolved]

NARRATIVE: CASE EVENT DATE: 20201003
